FAERS Safety Report 9342286 (Version 2)
Quarter: 2013Q4

REPORT INFORMATION
  Report Type: Spontaneous
  Country: FR (occurrence: FR)
  Receive Date: 20130611
  Receipt Date: 20131210
  Transmission Date: 20140711
  Serious: Yes (Disabling, Other)
  Sender: FDA-Public Use
  Company Number: FR-PFIZER INC-2013172173

PATIENT
  Sex: Male
  Weight: 2.82 kg

DRUGS (7)
  1. AMLOR [Suspect]
     Indication: HYPERTENSION
     Dosage: 5 MG, 1X/DAY
     Route: 064
     Dates: start: 20130110, end: 20130118
  2. ATRIPLA [Suspect]
     Indication: HIV INFECTION
     Dosage: 1 DF, 1X/DAY
     Route: 064
     Dates: start: 20110510, end: 20130306
  3. TRUVADA [Suspect]
     Indication: HIV INFECTION
     Dosage: 1 DF, 1X/DAY
     Route: 064
     Dates: start: 20130307, end: 20130430
  4. KALETRA [Suspect]
     Indication: HIV INFECTION
     Dosage: 2 DF, 2X/DAY
     Route: 064
     Dates: start: 20130307, end: 20130430
  5. ATACAND [Suspect]
     Indication: HYPERTENSION
     Dosage: 16 MG, 1X/DAY
     Route: 064
     Dates: start: 20130110, end: 20130118
  6. LOXEN [Concomitant]
     Dosage: UNK
     Dates: start: 20130119
  7. RHOPHYLAC [Concomitant]
     Dosage: UNK
     Dates: start: 20130222, end: 20130222

REACTIONS (3)
  - Maternal exposure during pregnancy [Not Recovered/Not Resolved]
  - Limb reduction defect [Not Recovered/Not Resolved]
  - Congenital bowing of long bones [Not Recovered/Not Resolved]
